FAERS Safety Report 25100031 (Version 1)
Quarter: 2025Q1

REPORT INFORMATION
  Report Type: Spontaneous
  Country: GB (occurrence: GB)
  Receive Date: 20250320
  Receipt Date: 20250320
  Transmission Date: 20250409
  Serious: Yes (Death, Congenital Anomaly)
  Sender: PFIZER
  Company Number: GB-PFIZER INC-202500059812

PATIENT
  Sex: Male

DRUGS (3)
  1. LEVETIRACETAM [Suspect]
     Active Substance: LEVETIRACETAM
     Route: 064
     Dates: start: 201107
  2. LAMOTRIGINE [Suspect]
     Active Substance: LAMOTRIGINE
     Indication: Epilepsy
     Route: 064
     Dates: start: 201107
  3. FOLIC ACID [Concomitant]
     Active Substance: FOLIC ACID
     Route: 064
     Dates: start: 201107

REACTIONS (3)
  - Maternal exposure before pregnancy [Fatal]
  - Maternal exposure during pregnancy [Fatal]
  - Trisomy 18 [Fatal]

NARRATIVE: CASE EVENT DATE: 20110701
